FAERS Safety Report 6751385-2 (Version None)
Quarter: 2010Q2

REPORT INFORMATION
  Report Type: 
  Country: None (occurrence: None)
  Receive Date: 20100528
  Receipt Date: 20100519
  Transmission Date: 20101027
  Serious: Yes (Other)
  Sender: FDA-Public Use
  Company Number: 2010US001467

PATIENT
  Age: 65 Year
  Sex: Male

DRUGS (4)
  1. AMBISOME [Suspect]
     Indication: PNEUMONIA FUNGAL
     Dosage: 125 MG, TOTAL DOSE, IV NOS
     Route: 048
     Dates: start: 20100413, end: 20100413
  2. FIRSTCIN (CEFOZOPRAN HYDROCHLORIDE) [Concomitant]
  3. UNASYN [Concomitant]
  4. DALACIN ST (CLINDAMYCIN PHOSPHATE) [Concomitant]

REACTIONS (3)
  - ANAPHYLACTIC SHOCK [None]
  - LOSS OF CONSCIOUSNESS [None]
  - ORGANISING PNEUMONIA [None]
